FAERS Safety Report 6426977-0 (Version None)
Quarter: 2009Q4

REPORT INFORMATION
  Report Type: 
  Country: None (occurrence: None)
  Receive Date: 20091104
  Receipt Date: 20091101
  Transmission Date: 20100525
  Serious: Yes (Hospitalization, Other)
  Sender: FDA-Public Use
  Company Number: DE-BAYER-200933697GPV

PATIENT
  Age: 71 Year
  Sex: Male
  Weight: 69 kg

DRUGS (1)
  1. NEXAVAR [Suspect]
     Indication: METASTATIC RENAL CELL CARCINOMA
     Route: 048
     Dates: start: 20090909, end: 20090924

REACTIONS (8)
  - ARRHYTHMIA [None]
  - ASTHENIA [None]
  - DYSPNOEA [None]
  - HYDRONEPHROSIS [None]
  - HYPOKALAEMIA [None]
  - RENAL FAILURE [None]
  - RHINORRHOEA [None]
  - TUBULOINTERSTITIAL NEPHRITIS [None]
